FAERS Safety Report 5737613-0 (Version None)
Quarter: 2008Q2

REPORT INFORMATION
  Report Type: 
  Country: None (occurrence: None)
  Receive Date: 20080512
  Receipt Date: 20080512
  Transmission Date: 20081010
  Serious: Yes (Death)
  Sender: FDA-Public Use
  Company Number: None

PATIENT
  Sex: Female
  Weight: 32.5 kg

DRUGS (4)
  1. THALIDOMIDE [Suspect]
     Indication: ACUTE LYMPHOCYTIC LEUKAEMIA
     Dosage: 100MG DAILY PO
     Route: 048
     Dates: start: 20080228, end: 20080313
  2. ETOPOSIDE [Suspect]
     Dosage: 56MG DAILY PO
     Route: 048
     Dates: start: 20080228, end: 20080313
  3. FINOFIBRATE [Concomitant]
  4. CELOCOXIB [Concomitant]

REACTIONS (3)
  - ACUTE LYMPHOCYTIC LEUKAEMIA [None]
  - MALIGNANT NEOPLASM PROGRESSION [None]
  - RESPIRATORY DISORDER [None]
